FAERS Safety Report 8986334 (Version 1)
Quarter: 2012Q4

REPORT INFORMATION
  Report Type: 
  Country: CA (occurrence: CA)
  Receive Date: 20121227
  Receipt Date: 20121227
  Transmission Date: 20130627
  Serious: Yes (Other)
  Sender: FDA-Public Use
  Company Number: CA-SP-2012-12476

PATIENT
  Age: 76 Year
  Sex: Male

DRUGS (1)
  1. BCG THERAPEUTICS [Suspect]
     Indication: BLADDER CANCER
     Route: 043

REACTIONS (4)
  - Orchitis [Unknown]
  - Testicular pain [Unknown]
  - Testicular swelling [Unknown]
  - Testicular mass [Unknown]
